FAERS Safety Report 6693681-3 (Version None)
Quarter: 2010Q2

REPORT INFORMATION
  Report Type: 
  Country: None (occurrence: None)
  Receive Date: 20100423
  Receipt Date: 20100412
  Transmission Date: 20101027
  Serious: Yes (Other)
  Sender: FDA-Public Use
  Company Number: US-ASTRAZENECA-2009SE18292

PATIENT
  Age: 17725 Day
  Sex: Male

DRUGS (8)
  1. SEROQUEL [Suspect]
     Route: 048
     Dates: start: 20051126
  2. DEPAKOTE [Concomitant]
     Dates: start: 20030101
  3. LEXAPRO [Concomitant]
     Dates: start: 20041021
  4. TRAZODONE HCL [Concomitant]
     Dates: start: 20030101
  5. ZYPREXA [Concomitant]
     Dates: start: 20030101
  6. AMBIEN [Concomitant]
     Dates: start: 20060321
  7. PRAVACHOL [Concomitant]
     Dates: start: 20060101
  8. LOTREL [Concomitant]
     Dosage: 10/20 CAP
     Dates: start: 20050101

REACTIONS (2)
  - DIABETES MELLITUS [None]
  - DIABETIC NEUROPATHY [None]
